FAERS Safety Report 7767955-9 (Version None)
Quarter: 2011Q3

REPORT INFORMATION
  Report Type: 
  Country: None (occurrence: None)
  Receive Date: 20110922
  Receipt Date: 20110524
  Transmission Date: 20111222
  Serious: Yes (Other)
  Sender: FDA-Public Use
  Company Number: US-ASTRAZENECA-2009UW21585

PATIENT
  Age: 365 Month
  Sex: Female
  Weight: 63.5 kg

DRUGS (7)
  1. PROTONIX [Concomitant]
  2. SEROQUEL [Suspect]
     Indication: BIPOLAR I DISORDER
     Route: 048
     Dates: start: 20060101, end: 20070101
  3. SEROQUEL [Suspect]
     Indication: ATTENTION DEFICIT/HYPERACTIVITY DISORDER
     Route: 048
     Dates: start: 20060101, end: 20070101
  4. PREVACID [Concomitant]
     Dates: start: 20080425
  5. LORTAB [Concomitant]
  6. SEROQUEL [Suspect]
     Route: 048
     Dates: start: 20080425
  7. SEROQUEL [Suspect]
     Route: 048
     Dates: start: 20080425

REACTIONS (1)
  - PANCREATITIS [None]
